FAERS Safety Report 18467177 (Version 1)
Quarter: 2020Q4

REPORT INFORMATION
  Report Type: Spontaneous
  Country: US (occurrence: US)
  Receive Date: 20201104
  Receipt Date: 20201104
  Transmission Date: 20210114
  Serious: Yes (Life-Threatening)
  Sender: FDA-Public Use
  Company Number: None

PATIENT
  Age: 64 Year
  Sex: Male

DRUGS (1)
  1. AMLODIPINE BENAZEPRIL (AMLODIPINE BESYLATE 10MG/BENAZEPRIL HCL 20MG CA [Suspect]
     Active Substance: AMLODIPINE BESYLATE\BENAZEPRIL HYDROCHLORIDE
     Indication: HYPERTENSION
     Dosage: ?          OTHER DOSE:1 UNITS;?
     Route: 048
     Dates: start: 20200630, end: 20200815

REACTIONS (1)
  - Angioedema [None]

NARRATIVE: CASE EVENT DATE: 20200815
